FAERS Safety Report 9444087 (Version 1)
Quarter: 2013Q3

REPORT INFORMATION
  Report Type: Spontaneous
  Country: GB (occurrence: GB)
  Receive Date: 20130807
  Receipt Date: 20130807
  Transmission Date: 20140515
  Serious: Yes (Congenital Anomaly)
  Sender: FDA-Public Use
  Company Number: GB-MYLANLABS-2013S1016465

PATIENT
  Sex: 0

DRUGS (6)
  1. OLANZAPINE [Suspect]
     Route: 064
  2. OMEPRAZOLE [Suspect]
     Route: 064
  3. ZOPICLONE [Suspect]
     Route: 064
  4. DIAZEPAM [Suspect]
     Route: 064
  5. PREGABALIN [Suspect]
     Route: 064
  6. SUBUTEX [Suspect]
     Route: 064

REACTIONS (6)
  - Congenital scoliosis [Not Recovered/Not Resolved]
  - Oesophageal atresia [Not Recovered/Not Resolved]
  - Single functional kidney [Not Recovered/Not Resolved]
  - Limb reduction defect [Not Recovered/Not Resolved]
  - Heart disease congenital [Not Recovered/Not Resolved]
  - Foetal exposure during pregnancy [Unknown]
